FAERS Safety Report 21214801 (Version 2)
Quarter: 2022Q3

REPORT INFORMATION
  Report Type: Report from Study
  Country: US (occurrence: US)
  Receive Date: 20220816
  Receipt Date: 20220824
  Transmission Date: 20221026
  Serious: No
  Sender: FDA-Public Use
  Company Number: US-NOVARTISTESTPH-NVSC2022US184375

PATIENT
  Sex: Female

DRUGS (1)
  1. KESIMPTA [Suspect]
     Active Substance: OFATUMUMAB
     Indication: Multiple sclerosis
     Dosage: UNK (INJECT 1 PEN (20MG) EVERY 30 (THIRTY) DAYS)
     Route: 058

REACTIONS (3)
  - Headache [Unknown]
  - Injection site rash [Unknown]
  - Product dose omission issue [Unknown]
